FAERS Safety Report 23789028 (Version 1)
Quarter: 2024Q2

REPORT INFORMATION
  Report Type: Spontaneous
  Country: CA (occurrence: CA)
  Receive Date: 20240426
  Receipt Date: 20240426
  Transmission Date: 20240716
  Serious: Yes (Other)
  Sender: FDA-Public Use
  Company Number: CA-BAYER-2024A060195

PATIENT
  Age: 27 Year
  Sex: Female

DRUGS (1)
  1. MIRENA [Suspect]
     Active Substance: LEVONORGESTREL
     Dosage: 20?G/DAY
     Route: 015
     Dates: start: 20080604, end: 20110410

REACTIONS (6)
  - Ectopic pregnancy [None]
  - Ruptured ectopic pregnancy [None]
  - Intra-abdominal haemorrhage [None]
  - Device dislocation [None]
  - Abdominal pain lower [None]
  - Drug ineffective [None]
